FAERS Safety Report 7242011-7 (Version None)
Quarter: 2011Q1

REPORT INFORMATION
  Report Type: 
  Country: None (occurrence: None)
  Receive Date: 20110124
  Receipt Date: 20110120
  Transmission Date: 20110831
  Serious: Yes (Death)
  Sender: FDA-Public Use
  Company Number: DE-ROCHE-721676

PATIENT
  Sex: Male
  Weight: 103.1 kg

DRUGS (9)
  1. KEPPRA [Concomitant]
     Dates: start: 20100819
  2. DEXAMETHASONE [Concomitant]
     Dosage: FREQUENCY WAS NOT PROVIDED
     Dates: start: 20100814, end: 20100819
  3. CLEXANE [Concomitant]
     Dates: start: 20100819
  4. TEMOZOLOMIDE [Suspect]
     Indication: GLIOBLASTOMA
     Dosage: DATE OF LAST DOSE PRIOR TO SAER: 13 AUGUST 2010
     Route: 048
     Dates: start: 20100722, end: 20100819
  5. KEPPRA [Concomitant]
     Dates: start: 20100613
  6. COTRIM [Concomitant]
     Dates: start: 20100722, end: 20100817
  7. BEVACIZUMAB [Suspect]
     Indication: GLIOBLASTOMA
     Dosage: DOSEFORM: INFUSION; DOSE BLINDED; DATE OF LAST DOSE PRIOR TO SAE: 05 AUGUST 2010
     Route: 042
     Dates: start: 20100722, end: 20100819
  8. PANTOZOL [Concomitant]
     Dates: start: 20100722
  9. ACYCLOVIR [Concomitant]
     Dates: start: 20100819

REACTIONS (1)
  - ENCEPHALITIS HERPES [None]
